FAERS Safety Report 8193951-6 (Version None)
Quarter: 2012Q1

REPORT INFORMATION
  Report Type: 
  Country: None (occurrence: None)
  Receive Date: 20120308
  Receipt Date: 20120302
  Transmission Date: 20120608
  Serious: Yes (Other)
  Sender: FDA-Public Use
  Company Number: GB-B.I. PHARMACEUTICALS,INC./RIDGEFIELD-2012-UK-00331UK

PATIENT
  Sex: Male

DRUGS (2)
  1. PRADAXA [Suspect]
     Indication: EMBOLISM VENOUS
  2. ENOXAPARIN SODIUM [Concomitant]
     Indication: HIP ARTHROPLASTY

REACTIONS (1)
  - ACUTE MYOCARDIAL INFARCTION [None]
